FAERS Safety Report 12431431 (Version 3)
Quarter: 2016Q3

REPORT INFORMATION
  Report Type: Spontaneous
  Country: ES (occurrence: ES)
  Receive Date: 20160603
  Receipt Date: 20160705
  Transmission Date: 20161109
  Serious: Yes (Other)
  Sender: FDA-Public Use
  Company Number: ES-AMGEN-ESPSP2015056461

PATIENT
  Age: 51 Year
  Sex: Male
  Weight: 125 kg

DRUGS (10)
  1. ENBREL [Suspect]
     Active Substance: ETANERCEPT
     Dosage: UNK
     Route: 065
  2. ENBREL [Suspect]
     Active Substance: ETANERCEPT
     Indication: PSORIATIC ARTHROPATHY
     Dosage: 50 MG, WEEKLY
     Route: 058
     Dates: start: 20150521
  3. ACFOL [Concomitant]
     Active Substance: FOLIC ACID
     Indication: PSORIATIC ARTHROPATHY
     Dosage: 1 TABLET EVERY WEDNESDAY
  4. ENBREL [Suspect]
     Active Substance: ETANERCEPT
     Dosage: UNK
     Route: 065
  5. CEMIDON [Concomitant]
     Active Substance: ISONIAZID
     Indication: PSORIATIC ARTHROPATHY
     Dosage: 150 MG, 1 TABLET EVERY 12 HOURS
  6. METOJECT [Concomitant]
     Active Substance: METHOTREXATE SODIUM
     Dosage: 20 MG, ONE INJECTION EVERY MONDAY
     Dates: start: 2015
  7. ENBREL [Suspect]
     Active Substance: ETANERCEPT
     Dosage: UNK
     Route: 065
  8. METOJECT [Concomitant]
     Active Substance: METHOTREXATE SODIUM
     Indication: PSORIATIC ARTHROPATHY
     Dosage: 25 MG, ONE INJECTION EVERY MONDAY
     Dates: end: 2015
  9. METOJECT [Concomitant]
     Active Substance: METHOTREXATE SODIUM
     Dosage: 10 MG, ONE INJECTION EVERY MONDAY
     Dates: end: 2016
  10. ESPIDIFEN [Concomitant]
     Active Substance: IBUPROFEN
     Indication: INFLAMMATION
     Dosage: UNK, AS NEEDED

REACTIONS (13)
  - Dizziness [Not Recovered/Not Resolved]
  - Acne [Not Recovered/Not Resolved]
  - Memory impairment [Not Recovered/Not Resolved]
  - Diabetes mellitus [Not Recovered/Not Resolved]
  - Daydreaming [Not Recovered/Not Resolved]
  - Injection site inflammation [Recovered/Resolved]
  - Erythema [Recovered/Resolved]
  - Localised infection [Recovered/Resolved]
  - Neck pain [Not Recovered/Not Resolved]
  - Pruritus generalised [Not Recovered/Not Resolved]
  - Inflammation [Recovered/Resolved]
  - Swollen tongue [Not Recovered/Not Resolved]
  - Dry throat [Not Recovered/Not Resolved]

NARRATIVE: CASE EVENT DATE: 2015
